FAERS Safety Report 6330510-1 (Version None)
Quarter: 2009Q3

REPORT INFORMATION
  Report Type: 
  Country: None (occurrence: None)
  Receive Date: 20090827
  Receipt Date: 20090818
  Transmission Date: 20100115
  Serious: Yes (Hospitalization, Disabling)
  Sender: FDA-Public Use
  Company Number: MX-ASTRAZENECA-2009SE09345

PATIENT
  Age: 816 Month
  Sex: Female
  Weight: 80 kg

DRUGS (3)
  1. ANASTROZOLE [Suspect]
     Indication: BREAST CANCER
     Route: 048
     Dates: start: 20070101
  2. TAMOXIFEN CITRATE [Suspect]
     Indication: BREAST CANCER
     Route: 048
     Dates: start: 20060901, end: 20070101
  3. DIOVAN HCT [Concomitant]
     Indication: HYPERTENSION
     Dates: start: 20040101

REACTIONS (8)
  - APATHY [None]
  - ARTHRALGIA [None]
  - CATARACT [None]
  - EPISTAXIS [None]
  - FATIGUE [None]
  - HOT FLUSH [None]
  - MUSCLE SPASMS [None]
  - VISUAL ACUITY REDUCED [None]
